FAERS Safety Report 8197122-9 (Version None)
Quarter: 2012Q1

REPORT INFORMATION
  Report Type: 
  Country: None (occurrence: None)
  Receive Date: 20120307
  Receipt Date: 20120227
  Transmission Date: 20120608
  Serious: Yes (Death, Hospitalization)
  Sender: FDA-Public Use
  Company Number: DSA_48915_2012

PATIENT
  Sex: Male

DRUGS (16)
  1. XENAZINE [Suspect]
     Indication: HUNTINGTON'S DISEASE
     Dosage: (25 MG QID, AT 7AM, 11AM, 4PM AND 8PM ORAL)
     Route: 048
     Dates: start: 20100514, end: 20120108
  2. MIDAZOLAM [Concomitant]
  3. MORPHINE [Concomitant]
  4. OXYCODONE HCL [Concomitant]
  5. RISPERDAL [Concomitant]
  6. TEGRETOL [Concomitant]
  7. CLONIDINE [Concomitant]
  8. PHENERGAN [Concomitant]
  9. CLONAZEPAM [Concomitant]
  10. BENADRYL [Concomitant]
  11. ATIVAN [Concomitant]
  12. BACLOFEN [Concomitant]
  13. VALPROIC ACID [Concomitant]
  14. METHADON HCL TAB [Concomitant]
  15. TRAZODONE HCL [Concomitant]
  16. KEPPRA [Concomitant]

REACTIONS (10)
  - DYSTONIA [None]
  - UPPER RESPIRATORY TRACT INFECTION [None]
  - WHITE BLOOD CELL COUNT INCREASED [None]
  - ABDOMINAL DISTENSION [None]
  - ASPIRATION [None]
  - VIRAL INFECTION [None]
  - URINARY RETENTION [None]
  - PNEUMONIA [None]
  - CONVULSION [None]
  - ILEUS [None]
